FAERS Safety Report 17618947 (Version 1)
Quarter: 2020Q2

REPORT INFORMATION
  Report Type: Spontaneous
  Country: US (occurrence: US)
  Receive Date: 20200402
  Receipt Date: 20200402
  Transmission Date: 20200713
  Serious: Yes (Life-Threatening, Other)
  Sender: FDA-Public Use
  Company Number: US-BAUSCH-BL-2020-008974

PATIENT
  Age: 67 Year
  Sex: Male

DRUGS (4)
  1. MESALAMINE. [Suspect]
     Active Substance: MESALAMINE
     Indication: COLITIS ULCERATIVE
     Route: 065
     Dates: start: 2000
  2. MESALAMINE. [Suspect]
     Active Substance: MESALAMINE
     Dosage: DOSE REDUCED
     Route: 065
  3. IMURAN [Suspect]
     Active Substance: AZATHIOPRINE
     Dosage: DOSE REDUCED
     Route: 065
  4. IMURAN [Suspect]
     Active Substance: AZATHIOPRINE
     Indication: COLITIS ULCERATIVE
     Route: 065
     Dates: start: 2000

REACTIONS (7)
  - IIIrd nerve paralysis [Recovering/Resolving]
  - Rash [Recovering/Resolving]
  - Cavernous sinus syndrome [Recovering/Resolving]
  - B-cell lymphoma [Recovering/Resolving]
  - VIth nerve paralysis [Recovering/Resolving]
  - Post transplant lymphoproliferative disorder [Recovering/Resolving]
  - Vestibular disorder [Recovering/Resolving]

NARRATIVE: CASE EVENT DATE: 201907
